FAERS Safety Report 4580572-7 (Version None)
Quarter: 2005Q1

REPORT INFORMATION
  Report Type: 
  Country: None (occurrence: None)
  Receive Date: 20050214
  Receipt Date: 20040414
  Transmission Date: 20050727
  Serious: No
  Sender: FDA-Public Use
  Company Number: US-GLAXOSMITHKLINE-A0507187A

PATIENT
  Age: 62 Year
  Sex: Female

DRUGS (4)
  1. LAMICTAL [Suspect]
     Indication: PAIN
     Dosage: 200MG PER DAY
     Route: 048
     Dates: start: 20040229
  2. NEURONTIN [Concomitant]
  3. PROTONIX [Concomitant]
  4. VIT D [Concomitant]

REACTIONS (2)
  - PRURITUS [None]
  - RASH PAPULAR [None]
